FAERS Safety Report 6878427-8 (Version None)
Quarter: 2010Q3

REPORT INFORMATION
  Report Type: 
  Country: None (occurrence: None)
  Receive Date: 20100728
  Receipt Date: 20100723
  Transmission Date: 20110219
  Serious: Yes (Hospitalization, Other)
  Sender: FDA-Public Use
  Company Number: GB-TEVA-242495ISR

PATIENT
  Sex: Male
  Weight: 0.288 kg

DRUGS (3)
  1. CLOMIPRAMINE [Suspect]
     Indication: ANXIETY
     Route: 064
     Dates: start: 20070101
  2. CLOMIPRAMINE [Suspect]
     Indication: DEPRESSION
  3. CLOMIPRAMINE [Suspect]
     Indication: OBSESSIVE-COMPULSIVE DISORDER

REACTIONS (3)
  - GRUNTING [None]
  - HYPERCAPNIA [None]
  - NEONATAL RESPIRATORY DISTRESS SYNDROME [None]
